FAERS Safety Report 4302765-6 (Version None)
Quarter: 2004Q1

REPORT INFORMATION
  Report Type: 
  Country: None (occurrence: None)
  Receive Date: 20040224
  Receipt Date: 20030917
  Transmission Date: 20041129
  Serious: No
  Sender: FDA-Public Use
  Company Number: US-BRISTOL-MYERS SQUIBB COMPANY-12386926

PATIENT
  Sex: Female

DRUGS (1)
  1. KENALOG-10 [Suspect]
     Indication: ACNE CYSTIC
     Dates: start: 20030827

REACTIONS (1)
  - ATROPHY [None]
